FAERS Safety Report 14217789 (Version 3)
Quarter: 2018Q1

REPORT INFORMATION
  Report Type: Spontaneous
  Country: US (occurrence: US)
  Receive Date: 20171123
  Receipt Date: 20180215
  Transmission Date: 20180508
  Serious: No
  Sender: FDA-Public Use
  Company Number: US-PFIZER INC-2017503824

PATIENT
  Age: 53 Year
  Sex: Male
  Weight: 49.9 kg

DRUGS (2)
  1. ATROPINE SULFATE/DIPHENOXYLATE HYDROCHLORIDE [Suspect]
     Active Substance: ATROPINE SULFATE\DIPHENOXYLATE HYDROCHLORIDE
     Dosage: 10 MG, 2X/DAY
  2. ATROPINE SULFATE/DIPHENOXYLATE HYDROCHLORIDE [Suspect]
     Active Substance: ATROPINE SULFATE\DIPHENOXYLATE HYDROCHLORIDE
     Indication: DIARRHOEA
     Dosage: 5 MG, 2X/DAY, 2.5MG TABLET TWO IN MORNING AND TWO AT NIGHT

REACTIONS (3)
  - Product lot number issue [None]
  - Drug ineffective [Recovered/Resolved]
  - Product use issue [None]

NARRATIVE: CASE EVENT DATE: 201711
